FAERS Safety Report 9912660 (Version 1)
Quarter: 2014Q1

REPORT INFORMATION
  Report Type: Spontaneous
  Country: US (occurrence: None)
  Receive Date: 20140212
  Receipt Date: 20140212
  Transmission Date: 20141002
  Serious: Yes (Life-Threatening)
  Sender: FDA-Public Use
  Company Number: HA14-032-AE

PATIENT
  Age: 38 Year
  Sex: Male
  Weight: 83.92 kg

DRUGS (1)
  1. SMZ / TMP [Suspect]
     Indication: STAPHYLOCOCCAL INFECTION
     Dosage: 2 TABLETS A DAY
     Route: 048
     Dates: start: 20131218, end: 20140107

REACTIONS (2)
  - Stevens-Johnson syndrome [None]
  - Toxic epidermal necrolysis [None]
